FAERS Safety Report 18510123 (Version 3)
Quarter: 2021Q1

REPORT INFORMATION
  Report Type: Spontaneous
  Country: JP (occurrence: JP)
  Receive Date: 20201117
  Receipt Date: 20210311
  Transmission Date: 20210419
  Serious: Yes (Hospitalization)
  Sender: FDA-Public Use
  Company Number: NVSJ2020JP012032

PATIENT
  Age: 7 Year
  Sex: Female
  Weight: 24.5 kg

DRUGS (8)
  1. ILARIS [Suspect]
     Active Substance: CANAKINUMAB
     Dosage: 96 MG
     Route: 058
     Dates: start: 20201221
  2. ILARIS [Suspect]
     Active Substance: CANAKINUMAB
     Dosage: 96 MG
     Route: 058
     Dates: start: 20210118
  3. ILARIS [Suspect]
     Active Substance: CANAKINUMAB
     Indication: STILL^S DISEASE
     Dosage: 96 MG
     Route: 058
     Dates: start: 20190422
  4. PREDNISOLONE. [Concomitant]
     Active Substance: PREDNISOLONE
     Dosage: 22.5 MG, QD
     Route: 048
     Dates: start: 20201111
  5. PREDNISOLONE. [Concomitant]
     Active Substance: PREDNISOLONE
     Indication: STILL^S DISEASE
     Dosage: 5 MG, QD
     Route: 048
     Dates: start: 20200525, end: 20201108
  6. ILARIS [Suspect]
     Active Substance: CANAKINUMAB
     Dosage: 96 MG
     Route: 058
     Dates: start: 20201026
  7. ILARIS [Suspect]
     Active Substance: CANAKINUMAB
     Dosage: 96 MG
     Route: 058
     Dates: start: 20201125
  8. PREDNISOLONE. [Concomitant]
     Active Substance: PREDNISOLONE
     Dosage: 8 MG, QD
     Route: 048
     Dates: start: 20201109, end: 20201110

REACTIONS (5)
  - Haemophagocytic lymphohistiocytosis [Recovered/Resolved]
  - Chills [Unknown]
  - Still^s disease [Recovered/Resolved]
  - Disease progression [Recovered/Resolved]
  - Pyrexia [Recovered/Resolved]

NARRATIVE: CASE EVENT DATE: 20201109
